FAERS Safety Report 4895186-9 (Version None)
Quarter: 2006Q1

REPORT INFORMATION
  Report Type: 
  Country: None (occurrence: None)
  Receive Date: 20060125
  Receipt Date: 20031117
  Transmission Date: 20060701
  Serious: Yes (Hospitalization)
  Sender: FDA-Public Use
  Company Number: FR_031103152

PATIENT
  Age: 79 Year
  Sex: Female
  Weight: 50 kg

DRUGS (5)
  1. VANCOMYCIN [Suspect]
     Dosage: 1500 MG/DAY
     Dates: start: 20030927, end: 20031002
  2. DEPAKENE [Concomitant]
  3. DEPAKENE [Concomitant]
  4. AMIKIN [Concomitant]
  5. TAZOCILLINE [Concomitant]

REACTIONS (3)
  - ENCEPHALOPATHY [None]
  - EPILEPSY [None]
  - METABOLIC ENCEPHALOPATHY [None]
